FAERS Safety Report 10950558 (Version 1)
Quarter: 2015Q1

REPORT INFORMATION
  Report Type: Spontaneous
  Country: US (occurrence: US)
  Receive Date: 20150324
  Receipt Date: 20150324
  Transmission Date: 20150721
  Serious: No
  Sender: FDA-Public Use
  Company Number: US-GLAXOSMITHKLINE-US2015035491

PATIENT
  Sex: Female

DRUGS (8)
  1. NITROGLYCERIN. [Concomitant]
     Active Substance: NITROGLYCERIN
  2. PROAIR HFA [Concomitant]
     Active Substance: ALBUTEROL SULFATE
  3. TRAZODONE [Concomitant]
     Active Substance: TRAZODONE HYDROCHLORIDE
  4. NASONEX [Concomitant]
     Active Substance: MOMETASONE FUROATE
  5. METOPROLOL [Concomitant]
     Active Substance: METOPROLOL
  6. BREO ELLIPTA [Suspect]
     Active Substance: FLUTICASONE FUROATE\VILANTEROL TRIFENATATE
     Indication: VIRAL INFECTION
     Dosage: 1 PUFF(S), QD
     Route: 055
     Dates: start: 20150217
  7. DIAZEPAM. [Concomitant]
     Active Substance: DIAZEPAM
  8. LEVALBUTEROL [Concomitant]
     Active Substance: LEVALBUTEROL

REACTIONS (7)
  - Pain in extremity [Recovered/Resolved]
  - Skin discolouration [Recovering/Resolving]
  - Eye pain [Recovered/Resolved]
  - Chest pain [Recovering/Resolving]
  - Insomnia [Recovering/Resolving]
  - Dysphemia [Recovered/Resolved]
  - Heart rate increased [Recovering/Resolving]
